APPROVED DRUG PRODUCT: LOPRESSOR
Active Ingredient: METOPROLOL FUMARATE
Strength: EQ 400MG TARTRATE
Dosage Form/Route: TABLET, EXTENDED RELEASE;ORAL
Application: N019786 | Product #004
Applicant: NOVARTIS PHARMACEUTICALS CORP
Approved: Dec 27, 1989 | RLD: No | RS: No | Type: DISCN